FAERS Safety Report 16631844 (Version 2)
Quarter: 2019Q3

REPORT INFORMATION
  Report Type: Spontaneous
  Country: BR (occurrence: BR)
  Receive Date: 20190725
  Receipt Date: 20190909
  Transmission Date: 20191004
  Serious: Yes (Other)
  Sender: FDA-Public Use
  Company Number: BR-GLAXOSMITHKLINE-BR2019AMR131463

PATIENT
  Age: 58 Year
  Sex: Female

DRUGS (1)
  1. AEROLIN [Suspect]
     Active Substance: ALBUTEROL
     Indication: ASTHMA
     Dosage: 100 UG, TID

REACTIONS (5)
  - Asthmatic crisis [Unknown]
  - Product complaint [Unknown]
  - Therapy cessation [Unknown]
  - Malaise [Unknown]
  - Wrong technique in product usage process [Unknown]
